FAERS Safety Report 8972776 (Version 2)
Quarter: 2013Q1

REPORT INFORMATION
  Report Type: Spontaneous
  Country: JP (occurrence: JP)
  Receive Date: 20121219
  Receipt Date: 20130123
  Transmission Date: 20140127
  Serious: Yes (Life-Threatening)
  Sender: FDA-Public Use
  Company Number: JP-MYLANLABS-2012S1021049

PATIENT
  Age: 44 Year
  Sex: Female
  Weight: 57.9 kg

DRUGS (6)
  1. CARBOPLATIN [Suspect]
     Indication: NON-SMALL CELL LUNG CANCER
     Route: 041
     Dates: end: 20121004
  2. ALIMTA [Concomitant]
     Indication: LUNG NEOPLASM MALIGNANT
     Route: 041
     Dates: start: 20121004, end: 20121004
  3. DEXAMETHASONE SODIUM PHOSPHATE [Concomitant]
     Indication: PRODUCT USED FOR UNKNOWN INDICATION
     Dates: start: 20121004, end: 20121004
  4. ALOXI [Concomitant]
     Indication: PRODUCT USED FOR UNKNOWN INDICATION
     Route: 041
     Dates: start: 20121004, end: 20121004
  5. ALIMTA [Concomitant]
     Indication: LUNG NEOPLASM MALIGNANT
     Route: 041
     Dates: start: 20120305, end: 20120828
  6. RADIATION THERAPY [Concomitant]
     Indication: RADIOTHERAPY
     Dates: start: 20120308, end: 20120330

REACTIONS (3)
  - Anaphylactic shock [Recovered/Resolved]
  - Septic shock [Recovered/Resolved]
  - Disseminated intravascular coagulation [Recovered/Resolved]
